FAERS Safety Report 6529139-1 (Version None)
Quarter: 2010Q1

REPORT INFORMATION
  Report Type: 
  Country: None (occurrence: None)
  Receive Date: 20100107
  Receipt Date: 20091230
  Transmission Date: 20100710
  Serious: Yes (Other)
  Sender: FDA-Public Use
  Company Number: GB-TEVA-219590ISR

PATIENT
  Age: 9 Year
  Sex: Male

DRUGS (4)
  1. CARBAMAZEPINE [Suspect]
     Indication: EPILEPSY
     Dosage: 100 MG IN THE MORNING, 200 MG IN THE EVENING.
     Dates: start: 20090401
  2. METHYLPHENIDATE HCL [Interacting]
     Indication: ATTENTION DEFICIT/HYPERACTIVITY DISORDER
     Dates: start: 20070301, end: 20081101
  3. METHYLPHENIDATE HCL [Interacting]
     Dates: start: 20090401, end: 20090701
  4. METHYLPHENIDATE HCL [Interacting]
     Dates: start: 20090701

REACTIONS (3)
  - CONVULSION [None]
  - DRUG INEFFECTIVE [None]
  - DRUG INTERACTION [None]
